FAERS Safety Report 8820738 (Version 1)
Quarter: 2012Q4

REPORT INFORMATION
  Report Type: 
  Country: GB (occurrence: GB)
  Receive Date: 20121002
  Receipt Date: 20121002
  Transmission Date: 20130627
  Serious: Yes (Death)
  Sender: FDA-Public Use
  Company Number: GB-PFIZER INC-2012242474

PATIENT

DRUGS (1)
  1. FRAGMIN [Suspect]

REACTIONS (1)
  - Incorrect dose administered [Fatal]
